FAERS Safety Report 5282861-X (Version None)
Quarter: 2007Q1

REPORT INFORMATION
  Report Type: 
  Country: None (occurrence: None)
  Receive Date: 20070314
  Receipt Date: 20070227
  Transmission Date: 20070707
  Serious: Yes (Other)
  Sender: FDA-Public Use
  Company Number: AECAN200700049

PATIENT
  Age: 63 Year
  Sex: Male

DRUGS (2)
  1. GAMUNEX [Suspect]
     Indication: POLYMYOSITIS
     Dosage: 100 ML; IV
     Route: 042
     Dates: start: 20060921, end: 20060921
  2. IGIVNEX - TALECRIS (IMMUNE GLOBULIN IV (HUMAN), CAPRYLATE/CHROMATOGRAP [Suspect]
     Dosage: 400 ML; IV
     Route: 042
     Dates: start: 20060921, end: 20060921

REACTIONS (2)
  - DEEP VEIN THROMBOSIS [None]
  - DISEASE RECURRENCE [None]
